FAERS Safety Report 5254809-5 (Version None)
Quarter: 2007Q1

REPORT INFORMATION
  Report Type: 
  Country: None (occurrence: None)
  Receive Date: 20070305
  Receipt Date: 20070220
  Transmission Date: 20070707
  Serious: Yes (Hospitalization)
  Sender: FDA-Public Use
  Company Number: CH-ELI_LILLY_AND_COMPANY-CH200702004479

PATIENT
  Age: 81 Year
  Sex: Female
  Weight: 46.1 kg

DRUGS (3)
  1. ZYPREXA [Suspect]
     Indication: MENTAL DISORDER
     Dosage: 15 MG, 2/D
     Route: 048
     Dates: start: 20060322, end: 20060322
  2. ASPIRIN [Concomitant]
     Dosage: 100 MG, DAILY (1/D)
     Route: 048
     Dates: start: 20000101
  3. LORAZEPAM [Concomitant]
     Dosage: 2.5 MG, DAILY (1/D)
     Route: 048
     Dates: start: 20060322, end: 20060322

REACTIONS (3)
  - DEHYDRATION [None]
  - DELIRIUM [None]
  - VASCULAR ENCEPHALOPATHY [None]
